FAERS Safety Report 9332491 (Version 1)
Quarter: 2013Q2

REPORT INFORMATION
  Report Type: Spontaneous
  Country: BE (occurrence: BE)
  Receive Date: 20130606
  Receipt Date: 20130606
  Transmission Date: 20140414
  Serious: Yes (Death, Hospitalization)
  Sender: FDA-Public Use
  Company Number: BE-JNJFOC-20130519074

PATIENT
  Age: 88 Year
  Sex: Female

DRUGS (6)
  1. XARELTO [Suspect]
     Indication: KNEE ARTHROPLASTY
     Route: 048
     Dates: start: 20130409, end: 20130417
  2. XARELTO [Suspect]
     Indication: THROMBOSIS PROPHYLAXIS
     Route: 048
     Dates: start: 20130409, end: 20130417
  3. LIPITOR [Concomitant]
     Route: 065
  4. AMLOR [Concomitant]
     Route: 065
  5. HEPARIN [Concomitant]
     Route: 065
  6. COVERSYL [Concomitant]
     Route: 065

REACTIONS (3)
  - Duodenal ulcer haemorrhage [Fatal]
  - Anaemia [Unknown]
  - General physical health deterioration [Unknown]
